FAERS Safety Report 11122031 (Version 4)
Quarter: 2015Q4

REPORT INFORMATION
  Report Type: Spontaneous
  Country: US (occurrence: US)
  Receive Date: 20150519
  Receipt Date: 20151231
  Transmission Date: 20160304
  Serious: Yes (Other)
  Sender: FDA-Public Use
  Company Number: US-CELGENEUS-USA-2015051608

PATIENT
  Age: 55 Year
  Sex: Female
  Weight: 36.32 kg

DRUGS (5)
  1. METHOTREXATE [Concomitant]
     Active Substance: METHOTREXATE
     Indication: PRODUCT USED FOR UNKNOWN INDICATION
     Route: 065
  2. OTEZLA [Suspect]
     Active Substance: APREMILAST
     Indication: PSORIATIC ARTHROPATHY
     Route: 048
     Dates: start: 20150421
  3. OTEZLA [Suspect]
     Active Substance: APREMILAST
     Indication: PSORIASIS
     Route: 048
     Dates: start: 20150105
  4. OTEZLA [Suspect]
     Active Substance: APREMILAST
     Indication: PUSTULAR PSORIASIS
     Route: 048
     Dates: start: 20150421, end: 201505
  5. CELEBREX [Concomitant]
     Active Substance: CELECOXIB
     Indication: PRODUCT USED FOR UNKNOWN INDICATION
     Route: 065

REACTIONS (5)
  - Fatigue [Recovered/Resolved]
  - Weight decreased [Recovering/Resolving]
  - Diarrhoea [Recovered/Resolved]
  - Headache [Recovered/Resolved]
  - Sputum increased [Recovered/Resolved]

NARRATIVE: CASE EVENT DATE: 201504
